FAERS Safety Report 23041599 (Version 4)
Quarter: 2023Q4

REPORT INFORMATION
  Report Type: Spontaneous
  Country: US (occurrence: US)
  Receive Date: 20231007
  Receipt Date: 20231127
  Transmission Date: 20240109
  Serious: Yes (Other)
  Sender: FDA-Public Use
  Company Number: US-AUROBINDO-AUR-APL-2023-062103

PATIENT
  Age: 85 Year
  Sex: Female
  Weight: 45 kg

DRUGS (6)
  1. LOSARTAN POTASSIUM [Suspect]
     Active Substance: LOSARTAN POTASSIUM
     Indication: Hypertension
     Dosage: UNK
     Route: 065
     Dates: start: 202204
  2. ASPIRIN [Concomitant]
     Active Substance: ASPIRIN
     Indication: Urinary tract infection
     Dosage: UNK
     Route: 065
  3. JANUVIA [Concomitant]
     Active Substance: SITAGLIPTIN PHOSPHATE
     Indication: Urinary tract infection
     Dosage: UNK
     Route: 065
  4. CEFDINIR [Concomitant]
     Active Substance: CEFDINIR
     Indication: Urinary tract infection
     Dosage: UNK
     Route: 065
  5. BACIROM [Concomitant]
     Indication: Product used for unknown indication
     Dosage: UNK
     Route: 065
  6. PLAVIX [Concomitant]
     Active Substance: CLOPIDOGREL BISULFATE
     Indication: Product used for unknown indication
     Dosage: UNK
     Route: 065

REACTIONS (10)
  - Near death experience [Unknown]
  - Fluid retention [Unknown]
  - Infection [Unknown]
  - Panic attack [Unknown]
  - Malaise [Unknown]
  - Ligament sprain [Unknown]
  - Negative thoughts [Unknown]
  - Limb discomfort [Unknown]
  - Treatment noncompliance [Unknown]
  - Product substitution issue [Unknown]
